FAERS Safety Report 8525029-3 (Version None)
Quarter: 2012Q3

REPORT INFORMATION
  Report Type: 
  Country: None (occurrence: None)
  Receive Date: 20120720
  Receipt Date: 20120709
  Transmission Date: 20120928
  Serious: Yes (Hospitalization, Other)
  Sender: FDA-Public Use
  Company Number: FR-BRISTOL-MYERS SQUIBB COMPANY-16761009

PATIENT
  Age: 2 Decade
  Sex: Male

DRUGS (2)
  1. PRAZEPAM [Concomitant]
  2. ABILIFY [Suspect]
     Indication: PSYCHOTIC DISORDER
     Dosage: DURATION:5 OR 6 MONTHS.

REACTIONS (5)
  - MALAISE [None]
  - LOSS OF CONSCIOUSNESS [None]
  - DELUSION [None]
  - BUNDLE BRANCH BLOCK [None]
  - ELECTROCARDIOGRAM QT PROLONGED [None]
